FAERS Safety Report 18924596 (Version 6)
Quarter: 2023Q1

REPORT INFORMATION
  Report Type: Spontaneous
  Country: US (occurrence: US)
  Receive Date: 20210222
  Receipt Date: 20230201
  Transmission Date: 20230417
  Serious: No
  Sender: FDA-Public Use
  Company Number: US-PFIZER INC-2021167617

PATIENT
  Age: 61 Year
  Sex: Female

DRUGS (2)
  1. IBRANCE [Suspect]
     Active Substance: PALBOCICLIB
     Dosage: 125 MG
     Dates: start: 20201105
  2. IBRANCE [Suspect]
     Active Substance: PALBOCICLIB
     Dosage: 125 MG
     Dates: start: 20201201

REACTIONS (10)
  - Product dose omission issue [Unknown]
  - Headache [Unknown]
  - Somnolence [Unknown]
  - Alopecia [Unknown]
  - Abscess oral [Unknown]
  - Feeling abnormal [Unknown]
  - Lacrimation increased [Unknown]
  - Visual impairment [Unknown]
  - Fatigue [Unknown]
  - Amnesia [Unknown]
